FAERS Safety Report 8911147 (Version 1)
Quarter: 2012Q4

REPORT INFORMATION
  Report Type: 
  Country: US (occurrence: US)
  Receive Date: 20121116
  Receipt Date: 20121116
  Transmission Date: 20130627
  Serious: No
  Sender: FDA-Public Use
  Company Number: US-GLAXOSMITHKLINE-A0987424A

PATIENT
  Age: 63 Year
  Sex: Male
  Weight: 94.5 kg

DRUGS (1)
  1. VOTRIENT [Suspect]
     Indication: RENAL CELL CARCINOMA
     Dosage: 800MG See dosage text
     Route: 048

REACTIONS (1)
  - Skin hypopigmentation [Not Recovered/Not Resolved]
